FAERS Safety Report 7224315-7 (Version None)
Quarter: 2011Q1

REPORT INFORMATION
  Report Type: 
  Country: None (occurrence: None)
  Receive Date: 20110113
  Receipt Date: 20110107
  Transmission Date: 20110831
  Serious: Yes (Other)
  Sender: FDA-Public Use
  Company Number: US-ELI_LILLY_AND_COMPANY-US201008005935

PATIENT
  Sex: Female
  Weight: 63.039 kg

DRUGS (13)
  1. LANTUS [Concomitant]
     Indication: TYPE 2 DIABETES MELLITUS
     Dosage: UNK, EACH EVENING
  2. SIMVASTATIN [Concomitant]
     Dosage: 40 MG, UNK
     Dates: start: 20100819
  3. FISH OIL [Concomitant]
     Indication: PRODUCT USED FOR UNKNOWN INDICATION
     Dosage: UNK, 2/D
  4. OMEPRAZOLE [Concomitant]
     Indication: PRODUCT USED FOR UNKNOWN INDICATION
     Dosage: 40 MG, UNK
  5. METFORMIN [Concomitant]
     Indication: TYPE 2 DIABETES MELLITUS
     Dosage: 2000 MG, DAILY (1/D)
  6. BYETTA [Suspect]
     Indication: INSULIN-REQUIRING TYPE 2 DIABETES MELLITUS
     Dosage: 5 UG, 2/D
     Route: 058
     Dates: start: 20100427, end: 20100518
  7. LISINOPRIL [Concomitant]
     Indication: HYPERTENSION
     Dosage: 40 MG, UNK
  8. SIMVASTATIN [Concomitant]
     Dosage: 20 MG, UNK
     Dates: start: 20100801, end: 20100819
  9. BYETTA [Suspect]
     Dosage: 10 UG, 2/D
     Route: 058
     Dates: start: 20100518, end: 20100819
  10. ACTOS [Concomitant]
     Indication: TYPE 2 DIABETES MELLITUS
     Dosage: 30 MG, UNK
  11. SIMVASTATIN [Concomitant]
     Indication: BLOOD CHOLESTEROL INCREASED
     Dosage: 40 MG, UNK
     Dates: end: 20100704
  12. SEASONALE [Concomitant]
     Indication: CONTRACEPTION
  13. ASPIRIN [Concomitant]

REACTIONS (11)
  - HEPATIC STEATOSIS [None]
  - GLYCOSYLATED HAEMOGLOBIN INCREASED [None]
  - OFF LABEL USE [None]
  - FEELING COLD [None]
  - MYALGIA [None]
  - LIVER FUNCTION TEST ABNORMAL [None]
  - BLOOD GLUCOSE INCREASED [None]
  - WEIGHT DECREASED [None]
  - NAUSEA [None]
  - BLOOD GLUCOSE DECREASED [None]
  - FATIGUE [None]
